FAERS Safety Report 5245300-0 (Version None)
Quarter: 2007Q1

REPORT INFORMATION
  Report Type: 
  Country: None (occurrence: None)
  Receive Date: 20070223
  Receipt Date: 20070219
  Transmission Date: 20070707
  Serious: Yes (Hospitalization, Other)
  Sender: FDA-Public Use
  Company Number: US-GLAXOSMITHKLINE-A0640627A

PATIENT
  Sex: Female

DRUGS (1)
  1. PAXIL [Suspect]
     Dosage: 10MG PER DAY
     Route: 048
     Dates: start: 20060828

REACTIONS (12)
  - ABNORMAL BEHAVIOUR [None]
  - BEDRIDDEN [None]
  - CONFUSIONAL STATE [None]
  - CRYING [None]
  - DECREASED INTEREST [None]
  - DEPRESSED MOOD [None]
  - DEPRESSION [None]
  - DISABILITY [None]
  - DISTURBANCE IN ATTENTION [None]
  - MALAISE [None]
  - SOCIAL AVOIDANT BEHAVIOUR [None]
  - SUICIDAL IDEATION [None]
